FAERS Safety Report 5899902-9 (Version None)
Quarter: 2008Q3

REPORT INFORMATION
  Report Type: 
  Country: None (occurrence: None)
  Receive Date: 20080926
  Receipt Date: 20080919
  Transmission Date: 20090109
  Serious: Yes (Hospitalization)
  Sender: FDA-Public Use
  Company Number: A0695676A

PATIENT
  Age: 57 Year
  Sex: Male
  Weight: 90.9 kg

DRUGS (7)
  1. AVANDIA [Suspect]
     Indication: DIABETES MELLITUS
     Dosage: 8MG TWICE PER DAY
     Route: 048
     Dates: start: 20000530, end: 20061216
  2. HUMALOG [Concomitant]
  3. LANTUS [Concomitant]
  4. GLYBURIDE [Concomitant]
  5. LIPITOR [Concomitant]
  6. ZOCOR [Concomitant]
  7. BEXTRA [Concomitant]

REACTIONS (4)
  - ANXIETY [None]
  - CEREBROVASCULAR ACCIDENT [None]
  - MYOCARDIAL INFARCTION [None]
  - PAIN [None]
